FAERS Safety Report 7906916 (Version 4)
Quarter: 2013Q2

REPORT INFORMATION
  Report Type: Spontaneous
  Country: US (occurrence: None)
  Receive Date: 20110329
  Receipt Date: 20130617
  Transmission Date: 20140414
  Serious: Yes (Other)
  Sender: FDA-Public Use
  Company Number: ACO_22482_2011

PATIENT
  Age: 59 Year
  Sex: Female
  Weight: 64.4 kg

DRUGS (1)
  1. AMPYRA (DALFAMPRIDINE) TABLET, 10 MG [Suspect]
     Indication: PRODUCT USED FOR UNKNOWN INDICATION
     Dosage: 10 MG, BID, ORAL
     Route: 048
     Dates: start: 20100701, end: 201103

REACTIONS (6)
  - RENAL FAILURE ACUTE [None]
  - RENAL MASS [None]
  - URINARY TRACT INFECTION [None]
  - NEPHROLITHIASIS [None]
  - BACK PAIN [None]
  - Therapeutic response unexpected [None]
